FAERS Safety Report 9468325 (Version 3)
Quarter: 2013Q4

REPORT INFORMATION
  Report Type: Spontaneous
  Country: US (occurrence: US)
  Receive Date: 20130821
  Receipt Date: 20131212
  Transmission Date: 20140711
  Serious: Yes (Death, Life-Threatening, Hospitalization, Other)
  Sender: FDA-Public Use
  Company Number: US-009507513-1308USA008964

PATIENT
  Sex: Female
  Weight: 56.69 kg

DRUGS (4)
  1. JANUVIA [Suspect]
     Indication: TYPE 2 DIABETES MELLITUS
     Dosage: 100 MG, QD
     Route: 048
     Dates: start: 20081209, end: 20090108
  2. BYETTA [Suspect]
     Dosage: 5 MICROGRAM, BID
     Dates: start: 20050609, end: 20070429
  3. GLIMEPIRIDE [Concomitant]
     Indication: DIABETES MELLITUS
  4. METFORMIN [Concomitant]
     Indication: DIABETES MELLITUS

REACTIONS (5)
  - Pancreatic carcinoma [Fatal]
  - Breast cancer metastatic [Fatal]
  - Bile duct cancer [Unknown]
  - Cholecystectomy [Unknown]
  - Jaundice cholestatic [Unknown]
